FAERS Safety Report 9093545 (Version 1)
Quarter: 2013Q1

REPORT INFORMATION
  Report Type: Spontaneous
  Country: US (occurrence: None)
  Receive Date: 20130213
  Receipt Date: 20130213
  Transmission Date: 20140127
  Serious: Yes (Other)
  Sender: FDA-Public Use
  Company Number: None

PATIENT
  Age: 75 Year
  Sex: Female
  Weight: 113.4 kg

DRUGS (3)
  1. AZITHROMYCIN [Suspect]
     Dates: start: 20130110
  2. ZITHROMAX [Suspect]
     Dates: start: 20130110
  3. PHENERGAN [Suspect]
     Dates: start: 20130110

REACTIONS (3)
  - Dizziness [None]
  - Abasia [None]
  - Gait disturbance [None]
